FAERS Safety Report 4281594-6 (Version None)
Quarter: 2004Q1

REPORT INFORMATION
  Report Type: 
  Country: None (occurrence: None)
  Receive Date: 20040123
  Receipt Date: 20030923
  Transmission Date: 20041129
  Serious: Yes (Other)
  Sender: FDA-Public Use
  Company Number: HQWYE854524SEP03

PATIENT
  Sex: Male

DRUGS (4)
  1. CORDARONE [Suspect]
  2. CEFTRIAXONE [Concomitant]
  3. LEVAQUIN [Concomitant]
  4. ZYVOX [Concomitant]

REACTIONS (1)
  - STEVENS-JOHNSON SYNDROME [None]
